FAERS Safety Report 17501530 (Version 1)
Quarter: 2020Q1

REPORT INFORMATION
  Report Type: Spontaneous
  Country: NL (occurrence: NL)
  Receive Date: 20200305
  Receipt Date: 20200305
  Transmission Date: 20200409
  Serious: Yes (Death)
  Sender: FDA-Public Use
  Company Number: NL-TEVA-2020-NL-1194351

PATIENT
  Sex: Female

DRUGS (2)
  1. SILDENAFIL 20 MG [Suspect]
     Active Substance: SILDENAFIL
     Indication: NYHA CLASSIFICATION
  2. SILDENAFIL 20 MG [Suspect]
     Active Substance: SILDENAFIL
     Indication: PULMONARY ARTERIAL HYPERTENSION
     Dosage: 60 MILLIGRAM DAILY; CURRENT PRESCRIPTION PERIOD: 09-DEC-2019 TO 08-JUN-2020
     Route: 048

REACTIONS (1)
  - Death [Fatal]
